FAERS Safety Report 5789035-4 (Version None)
Quarter: 2008Q2

REPORT INFORMATION
  Report Type: 
  Country: None (occurrence: None)
  Receive Date: 20080626
  Receipt Date: 20080619
  Transmission Date: 20081010
  Serious: Yes (Other)
  Sender: FDA-Public Use
  Company Number: B0361718A

PATIENT
  Age: 27 Year
  Sex: Female

DRUGS (4)
  1. PAROXETINE HCL [Suspect]
     Route: 065
     Dates: start: 19961128
  2. DIAZEPAM [Concomitant]
     Dosage: 2MG PER DAY
     Dates: start: 19891122
  3. PROPRANOLOL [Concomitant]
     Dosage: 40MG TWICE PER DAY
  4. ZOLPIDEM [Concomitant]

REACTIONS (24)
  - AGITATION [None]
  - ANOREXIA [None]
  - CONFUSIONAL STATE [None]
  - DIARRHOEA [None]
  - DISTURBANCE IN ATTENTION [None]
  - DIZZINESS [None]
  - FATIGUE [None]
  - FEELING OF BODY TEMPERATURE CHANGE [None]
  - HEADACHE [None]
  - HYPERHIDROSIS [None]
  - INFLUENZA LIKE ILLNESS [None]
  - INSOMNIA [None]
  - LETHARGY [None]
  - MALAISE [None]
  - MEMORY IMPAIRMENT [None]
  - MOOD SWINGS [None]
  - NAUSEA [None]
  - NIGHTMARE [None]
  - PANIC ATTACK [None]
  - PARAESTHESIA [None]
  - SUICIDAL IDEATION [None]
  - TREMOR [None]
  - VERTIGO [None]
  - WITHDRAWAL SYNDROME [None]
